FAERS Safety Report 4773756-6 (Version None)
Quarter: 2005Q3

REPORT INFORMATION
  Report Type: 
  Country: None (occurrence: None)
  Receive Date: 20050920
  Receipt Date: 20050914
  Transmission Date: 20060218
  Serious: Yes (Death, Hospitalization)
  Sender: FDA-Public Use
  Company Number: FR-MERCK-0509FRA00050

PATIENT
  Age: 68 Year
  Sex: Male

DRUGS (6)
  1. ZOCOR [Suspect]
     Route: 048
     Dates: start: 20050601, end: 20050810
  2. VALPROATE SODIUM [Suspect]
     Route: 048
     Dates: start: 20050606, end: 20050810
  3. FLURBIPROFEN [Suspect]
     Route: 048
     Dates: start: 20050714, end: 20050810
  4. OMEPRAZOLE [Suspect]
     Route: 048
     Dates: start: 20050601, end: 20050810
  5. RAMIPRIL [Concomitant]
     Route: 048
  6. TRIMETAZIDINE HYDROCHLORIDE [Concomitant]
     Route: 048

REACTIONS (19)
  - ALANINE AMINOTRANSFERASE INCREASED [None]
  - ANOREXIA [None]
  - ANTIBODY TEST POSITIVE [None]
  - ASPARTATE AMINOTRANSFERASE INCREASED [None]
  - ASTHENIA [None]
  - BLOOD CREATININE INCREASED [None]
  - CONFUSIONAL STATE [None]
  - DIALYSIS [None]
  - DRUG ERUPTION [None]
  - EOSINOPHIL COUNT INCREASED [None]
  - GENERAL PHYSICAL HEALTH DETERIORATION [None]
  - HEPATOMEGALY [None]
  - HYPERSENSITIVITY [None]
  - PAIN [None]
  - PRURITUS [None]
  - PYREXIA [None]
  - RASH [None]
  - TREMOR [None]
  - VOMITING [None]
